FAERS Safety Report 7609941-5 (Version None)
Quarter: 2011Q3

REPORT INFORMATION
  Report Type: 
  Country: None (occurrence: None)
  Receive Date: 20110714
  Receipt Date: 20100825
  Transmission Date: 20111222
  Serious: Yes (Death)
  Sender: FDA-Public Use
  Company Number: US-TYCO HEALTHCARE/MALLINCKRODT-T201001864

PATIENT
  Sex: Male

DRUGS (3)
  1. METHADOSE [Suspect]
     Dosage: UNK
  2. ALPRAZOLAM [Suspect]
     Dosage: UNK
  3. OXYCODONE HCL [Suspect]
     Dosage: UNK

REACTIONS (1)
  - MULTIPLE DRUG OVERDOSE [None]
